FAERS Safety Report 8315888-1 (Version None)
Quarter: 2012Q2

REPORT INFORMATION
  Report Type: 
  Country: None (occurrence: None)
  Receive Date: 20120427
  Receipt Date: 20120417
  Transmission Date: 20120825
  Serious: Yes (Other)
  Sender: FDA-Public Use
  Company Number: US-BIOGENIDEC-2012BI013492

PATIENT
  Age: 30 Year
  Sex: Female

DRUGS (2)
  1. AVONEX [Suspect]
     Route: 030
     Dates: start: 20110901
  2. AVONEX [Suspect]
     Indication: MULTIPLE SCLEROSIS
     Route: 030
     Dates: start: 20080311, end: 20101022

REACTIONS (4)
  - EMOTIONAL DISORDER [None]
  - SELECTIVE ABORTION [None]
  - THROMBOSIS [None]
  - MATERNAL EXPOSURE DURING PREGNANCY [None]
